FAERS Safety Report 13158650 (Version 1)
Quarter: 2017Q1

REPORT INFORMATION
  Report Type: Spontaneous
  Country: FR (occurrence: FR)
  Receive Date: 20170127
  Receipt Date: 20170127
  Transmission Date: 20170428
  Serious: Yes (Hospitalization)
  Sender: FDA-Public Use
  Company Number: FR-JNJFOC-20170122997

PATIENT
  Sex: Female

DRUGS (1)
  1. CAELYX [Suspect]
     Active Substance: DOXORUBICIN HYDROCHLORIDE
     Indication: OVARIAN CANCER
     Route: 042
     Dates: start: 20161212, end: 20161212

REACTIONS (3)
  - Skin exfoliation [Unknown]
  - Skin hyperpigmentation [Unknown]
  - Dermatitis exfoliative [Unknown]
